FAERS Safety Report 9547154 (Version 1)
Quarter: 2013Q3

REPORT INFORMATION
  Report Type: Spontaneous
  Country: US (occurrence: None)
  Receive Date: 20130919
  Receipt Date: 20130919
  Transmission Date: 20140515
  Serious: Yes (Death)
  Sender: FDA-Public Use
  Company Number: UTC-037773

PATIENT
  Age: 52 Year
  Sex: Male
  Weight: 55.45 kg

DRUGS (1)
  1. REMODULIN (5 MILLIGRAM/MILLILITERS INJECTION FOR INFUSION) (TREPROSTINIL SODIUM) [Suspect]
     Indication: COR PULMONALE CHRONIC
     Dosage: 104.677 UG/KG (0.0727 UG/KG, 1 IN 1 MIN) INTRAVENOUS DRIP
     Route: 041
     Dates: start: 20080401

REACTIONS (1)
  - Death [None]
